FAERS Safety Report 9922270 (Version 2)
Quarter: 2014Q1

REPORT INFORMATION
  Report Type: Spontaneous
  Country: US (occurrence: US)
  Receive Date: 20140225
  Receipt Date: 20140317
  Transmission Date: 20141002
  Serious: Yes (Hospitalization)
  Sender: FDA-Public Use
  Company Number: US-GLAXOSMITHKLINE-A1061347A

PATIENT
  Age: 69 Year
  Sex: Male

DRUGS (5)
  1. VENTOLIN [Suspect]
     Indication: ASTHMA
     Dosage: 2PUFF AS REQUIRED
     Route: 055
  2. WARFARIN [Suspect]
     Indication: THROMBOSIS
     Route: 048
     Dates: start: 200403, end: 20100828
  3. LOVENOX [Concomitant]
  4. LISINOPRIL [Concomitant]
  5. SYMBICORT [Concomitant]

REACTIONS (5)
  - Cerebral haemorrhage [Unknown]
  - Contusion [Unknown]
  - Thrombosis [Recovered/Resolved]
  - Speech disorder [Not Recovered/Not Resolved]
  - Aphasia [Unknown]
